FAERS Safety Report 7553528-X (Version None)
Quarter: 2011Q2

REPORT INFORMATION
  Report Type: 
  Country: None (occurrence: None)
  Receive Date: 20110617
  Receipt Date: 20100913
  Transmission Date: 20111010
  Serious: No
  Sender: FDA-Public Use
  Company Number: US-BAYER-201036288NA

PATIENT
  Sex: Female

DRUGS (2)
  1. NUVARING [Concomitant]
  2. MIRENA [Suspect]
     Dosage: 20 ?G/D, CONT

REACTIONS (2)
  - AMENORRHOEA [None]
  - WEIGHT INCREASED [None]
